FAERS Safety Report 16559915 (Version 3)
Quarter: 2020Q1

REPORT INFORMATION
  Report Type: Report from Study
  Country: None (occurrence: IL)
  Receive Date: 20190711
  Receipt Date: 20200323
  Transmission Date: 20200409
  Serious: Yes (Hospitalization)
  Sender: FDA-Public Use
  Company Number: IL-ABBVIE-19K-082-2846787-00

PATIENT
  Age: 70 Year
  Sex: Male
  Weight: 74 kg

DRUGS (23)
  1. VENCLEXTA [Suspect]
     Active Substance: VENETOCLAX
     Dosage: DURATION-RAMP UP
     Route: 048
     Dates: start: 20190619, end: 20190626
  2. DISEPTYL FORTE [Concomitant]
     Indication: ANTIFUNGAL PROPHYLAXIS
  3. POTASSIUM CHLORIDE. [Concomitant]
     Active Substance: POTASSIUM CHLORIDE
     Indication: PROPHYLAXIS
     Dates: start: 20190624, end: 20190627
  4. VENCLEXTA [Suspect]
     Active Substance: VENETOCLAX
     Dosage: DURATION-RAMP UP
     Route: 048
     Dates: start: 20190711
  5. IVIGLOB EX [Concomitant]
     Active Substance: HUMAN IMMUNOGLOBULIN G
     Indication: INFECTION PROPHYLAXIS
     Dates: start: 2017
  6. OMEPRAZOLE. [Concomitant]
     Active Substance: OMEPRAZOLE
     Indication: GASTRITIS PROPHYLAXIS
  7. PREDNISONE. [Concomitant]
     Active Substance: PREDNISONE
     Indication: AUTOIMMUNE HAEMOLYTIC ANAEMIA
  8. RITUXIMAB. [Suspect]
     Active Substance: RITUXIMAB
     Dosage: DURATION- CYCLE 2
     Route: 065
     Dates: start: 20190710, end: 20190710
  9. PARACETAMOL [Concomitant]
     Active Substance: ACETAMINOPHEN
     Indication: PREMEDICATION
     Dates: start: 20190612
  10. BENADRYL [Concomitant]
     Active Substance: DIPHENHYDRAMINE HYDROCHLORIDE
     Indication: PREMEDICATION
     Dates: start: 20190612, end: 20190613
  11. VENCLEXTA [Suspect]
     Active Substance: VENETOCLAX
     Indication: CHRONIC LYMPHOCYTIC LEUKAEMIA
     Dosage: DURATION-RAMP UP
     Route: 048
     Dates: start: 20190613, end: 20190618
  12. VENCLEXTA [Suspect]
     Active Substance: VENETOCLAX
     Dosage: DURATION-RAMP UP
     Route: 048
     Dates: start: 20190627, end: 20190703
  13. VENCLEXTA [Suspect]
     Active Substance: VENETOCLAX
     Dosage: DURATION-RAMP UP
     Route: 048
     Dates: start: 20190704, end: 20190710
  14. LORATADINE. [Concomitant]
     Active Substance: LORATADINE
     Indication: PREMEDICATION
     Dates: start: 20190612
  15. DEXAMETHASONE. [Concomitant]
     Active Substance: DEXAMETHASONE
     Indication: PREMEDICATION
     Dates: start: 20190612, end: 20190613
  16. RITUXIMAB. [Suspect]
     Active Substance: RITUXIMAB
     Indication: CHRONIC LYMPHOCYTIC LEUKAEMIA
     Dosage: DURATION- CYCLE 1
     Route: 065
     Dates: start: 20190612, end: 20190612
  17. RITUXIMAB. [Suspect]
     Active Substance: RITUXIMAB
     Dosage: DURATION- CYCLE 3
     Route: 065
     Dates: start: 20190807, end: 20190807
  18. FOLIC ACID. [Concomitant]
     Active Substance: FOLIC ACID
     Indication: FOLATE DEFICIENCY
     Dates: start: 2015
  19. HYDROCORTISONE. [Concomitant]
     Active Substance: HYDROCORTISONE
     Indication: PREMEDICATION
     Dates: start: 20190630
  20. RITUXIMAB. [Suspect]
     Active Substance: RITUXIMAB
     Dosage: DURATION- CYCLE 4
     Route: 065
     Dates: start: 20190908, end: 20190908
  21. ALLOPURINOL. [Concomitant]
     Active Substance: ALLOPURINOL
     Indication: PROPHYLAXIS
     Dates: start: 20190612
  22. SANDIMMUN NEORAL [Concomitant]
     Active Substance: CYCLOSPORINE
     Indication: PRODUCT USED FOR UNKNOWN INDICATION
     Dates: start: 20200207
  23. SINGULAIR [Concomitant]
     Active Substance: MONTELUKAST SODIUM
     Indication: PREMEDICATION
     Dates: start: 20190612, end: 20190613

REACTIONS (7)
  - Haemolytic anaemia [Recovered/Resolved]
  - Hypophosphataemia [Recovered/Resolved]
  - Pyrexia [Recovered/Resolved]
  - Respiratory tract infection [Recovered/Resolved]
  - Oedema peripheral [Recovered/Resolved]
  - Cough [Recovered/Resolved]
  - Hypokalaemia [Recovered/Resolved]

NARRATIVE: CASE EVENT DATE: 201906
